FAERS Safety Report 15300610 (Version 1)
Quarter: 2018Q3

REPORT INFORMATION
  Report Type: Spontaneous
  Country: US (occurrence: US)
  Receive Date: 20180808
  Receipt Date: 20180808
  Transmission Date: 20181010
  Serious: No
  Sender: FDA-Public Use
  Company Number: None

PATIENT
  Age: 64 Year
  Sex: Female
  Weight: 89.81 kg

DRUGS (9)
  1. PREDISONE [Concomitant]
     Active Substance: PREDNISONE
  2. ADVAIR HFA [Concomitant]
     Active Substance: FLUTICASONE PROPIONATE\SALMETEROL XINAFOATE
  3. MULTI VIT?KIRKLAND/COSTCO [Concomitant]
  4. AMLODIPINE BESYLATE 10MG [Suspect]
     Active Substance: AMLODIPINE BESYLATE
     Indication: HYPERTENSION
     Route: 048
     Dates: start: 20180720, end: 20180727
  5. LOSARTAN POTASSIUM. [Concomitant]
     Active Substance: LOSARTAN POTASSIUM
  6. CITRACAL + D3 [Concomitant]
  7. VITAMIN D [Concomitant]
     Active Substance: CHOLECALCIFEROL
  8. AMLODIPINE BESYALTE [Concomitant]
  9. CLAIRITION [Concomitant]

REACTIONS (5)
  - Headache [None]
  - Malaise [None]
  - Drug ineffective [None]
  - Head discomfort [None]
  - Tinnitus [None]

NARRATIVE: CASE EVENT DATE: 20180722
